FAERS Safety Report 17179449 (Version 1)
Quarter: 2019Q4

REPORT INFORMATION
  Report Type: Spontaneous
  Country: RU (occurrence: RU)
  Receive Date: 20191219
  Receipt Date: 20191219
  Transmission Date: 20200122
  Serious: Yes (Other)
  Sender: FDA-Public Use
  Company Number: RU-SA-2019SA342995

PATIENT
  Age: 68 Year
  Sex: Female
  Weight: 78 kg

DRUGS (5)
  1. TOUJEO [Suspect]
     Active Substance: INSULIN GLARGINE
     Dosage: 28 IU, QD
     Route: 058
  2. TOUJEO [Suspect]
     Active Substance: INSULIN GLARGINE
     Indication: TYPE 2 DIABETES MELLITUS
     Dosage: 24 IU QD
     Route: 058
     Dates: start: 2014
  3. ACETYLSALICYLIC ACID [Concomitant]
     Active Substance: ASPIRIN
     Indication: MYOCARDIAL INFARCTION
     Dosage: UNK
     Route: 048
     Dates: start: 201909
  4. NOVORAPID [Concomitant]
     Active Substance: INSULIN ASPART
     Indication: TYPE 2 DIABETES MELLITUS
     Dosage: 14-16IU
     Route: 065
     Dates: start: 2014
  5. NOVORAPID [Concomitant]
     Active Substance: INSULIN ASPART
     Dosage: 12 IU, TID
     Route: 058

REACTIONS (3)
  - Hyperglycaemia [Not Recovered/Not Resolved]
  - Myocardial infarction [Unknown]
  - Hypoglycaemia [Not Recovered/Not Resolved]

NARRATIVE: CASE EVENT DATE: 201909
